FAERS Safety Report 10754004 (Version 1)
Quarter: 2015Q1

REPORT INFORMATION
  Report Type: Spontaneous
  Country: JP (occurrence: JP)
  Receive Date: 20150202
  Receipt Date: 20150202
  Transmission Date: 20150721
  Serious: Yes (Other)
  Sender: FDA-Public Use
  Company Number: JP-CIPLA LTD.-2015JP00739

PATIENT

DRUGS (4)
  1. CAPECITABINE. [Suspect]
     Active Substance: CAPECITABINE
     Indication: COLORECTAL CANCER METASTATIC
     Dosage: 1,700 MG/M2 PER DAY FROM DAY 2 TO 15 EVERY 3 WEEKS FOR A MAXIMUM OF 12 CYCLES
     Route: 048
  2. IRINOTECAN [Suspect]
     Active Substance: IRINOTECAN
     Indication: COLORECTAL CANCER METASTATIC
     Dosage: 120 MG/M2 IN 250ML OF NORMAL SALINE OVER 1 H ON D1EVERY 3 WEEKS FOR A MAXIMUM OF 12 CYCLES
     Route: 042
  3. BEVACIZUMAB [Suspect]
     Active Substance: BEVACIZUMAB
     Indication: COLORECTAL CANCER METASTATIC
     Dosage: 7.5 MG/KG ON D1(FIRST INFUSION OVER 90 MIN, 2ND INFUSION OVER 1 H AND SUBSEQUENT INFUSIONS OVER 30 M
     Route: 042
  4. OXALIPLATIN. [Suspect]
     Active Substance: OXALIPLATIN
     Indication: COLORECTAL CANCER METASTATIC
     Dosage: 100 MG/M2 IN 250 ML DEXTROSE 5 % (EVERY 3 WEEKS FOR A MAXIMUM OF 12 CYCLES)
     Route: 042

REACTIONS (1)
  - Neurotoxicity [Unknown]
